FAERS Safety Report 5102698-1 (Version None)
Quarter: 2006Q3

REPORT INFORMATION
  Report Type: 
  Country: None (occurrence: None)
  Receive Date: 20060912
  Receipt Date: 20060905
  Transmission Date: 20061208
  Serious: Yes (Death, Hospitalization)
  Sender: FDA-Public Use
  Company Number: US-JNJFOC-20060902143

PATIENT
  Age: 47 Year
  Sex: Female

DRUGS (3)
  1. IBUPROFEN [Suspect]
     Indication: SUICIDE ATTEMPT
  2. ACETAMINOPHEN [Suspect]
  3. ACETAMINOPHEN [Suspect]
     Indication: SUICIDE ATTEMPT

REACTIONS (6)
  - ACIDOSIS [None]
  - COMPLETED SUICIDE [None]
  - HEPATIC FUNCTION ABNORMAL [None]
  - HYPOTENSION [None]
  - MULTIPLE DRUG OVERDOSE INTENTIONAL [None]
  - RESPIRATORY DISTRESS [None]
